FAERS Safety Report 17111096 (Version 1)
Quarter: 2019Q4

REPORT INFORMATION
  Report Type: Spontaneous
  Country: US (occurrence: US)
  Receive Date: 20191204
  Receipt Date: 20191204
  Transmission Date: 20200122
  Serious: Yes (Other)
  Sender: FDA-Public Use
  Company Number: US-MYLANLABS-2019M1114648

PATIENT
  Age: 66 Year
  Sex: Male
  Weight: 120 kg

DRUGS (6)
  1. HEPARIN SODIUM INJECTION USP [Suspect]
     Active Substance: HEPARIN SODIUM
     Indication: PRODUCT USED FOR UNKNOWN INDICATION
     Dosage: UNK
     Dates: start: 20191120, end: 20191120
  2. FENTANYL. [Concomitant]
     Active Substance: FENTANYL
     Dosage: 100 MCG GIVEN 250 MG INCREMENTS OF 25 AND 50
  3. NITROGLYCERIN. [Concomitant]
     Active Substance: NITROGLYCERIN
     Dosage: 100 MCG AND THEN LATER 200  TOTAL OF 300 MCG
  4. NICARDIPINE [Concomitant]
     Active Substance: NICARDIPINE
     Dosage: 100 MICROGRAM
  5. HEPARIN [Concomitant]
     Active Substance: HEPARIN SODIUM
     Dosage: UNK
  6. MIDAZOLAM [Concomitant]
     Active Substance: MIDAZOLAM HYDROCHLORIDE
     Dosage: 5 MG ALL TOGETHER IN INCREMENTS

REACTIONS (3)
  - Drug resistance [Recovered/Resolved]
  - Extra dose administered [Recovered/Resolved]
  - Therapeutic product effect decreased [Unknown]

NARRATIVE: CASE EVENT DATE: 20191120
